FAERS Safety Report 17546803 (Version 2)
Quarter: 2020Q3

REPORT INFORMATION
  Report Type: Spontaneous
  Country: US (occurrence: US)
  Receive Date: 20200316
  Receipt Date: 20200707
  Transmission Date: 20201102
  Serious: No
  Sender: FDA-Public Use
  Company Number: US-SA-2020SA061297

PATIENT

DRUGS (1)
  1. DUPIXENT [Suspect]
     Active Substance: DUPILUMAB
     Indication: DERMATITIS ATOPIC
     Dosage: 200 MG, QOW, 200 MG/1.14ML
     Route: 058
     Dates: start: 20190619

REACTIONS (3)
  - Dry skin [Not Recovered/Not Resolved]
  - Dermatitis atopic [Not Recovered/Not Resolved]
  - Pigmentation disorder [Not Recovered/Not Resolved]

NARRATIVE: CASE EVENT DATE: 2020
